FAERS Safety Report 21927353 (Version 1)
Quarter: 2023Q1

REPORT INFORMATION
  Report Type: Spontaneous
  Country: GB (occurrence: GB)
  Receive Date: 20230130
  Receipt Date: 20230130
  Transmission Date: 20230418
  Serious: Yes (Life-Threatening, Other)
  Sender: FDA-Public Use
  Company Number: GB-MHRA-MED-202301210400437770-LCBWF

PATIENT
  Age: 50 Year
  Sex: Female
  Weight: 250 kg

DRUGS (5)
  1. VARENICLINE TARTRATE [Suspect]
     Active Substance: VARENICLINE TARTRATE
     Indication: Tobacco user
     Dosage: 0.5 MG
     Dates: start: 20230104, end: 20230106
  2. VARENICLINE TARTRATE [Suspect]
     Active Substance: VARENICLINE TARTRATE
     Dosage: 1 MG, 2X/DAY
     Dates: start: 20230107, end: 20230119
  3. CALCIUM\CHOLECALCIFEROL [Concomitant]
     Active Substance: CALCIUM\CHOLECALCIFEROL
     Indication: Surgery
     Dosage: UNK
     Dates: start: 20221208
  4. VITAMINS NOS [Concomitant]
     Active Substance: VITAMINS
     Indication: Adverse drug reaction
     Dosage: UNK
     Dates: start: 20221110
  5. VITAMINS NOS [Concomitant]
     Active Substance: VITAMINS
     Indication: Ankle operation

REACTIONS (4)
  - Abnormal dreams [Not Recovered/Not Resolved]
  - Somnambulism [Not Recovered/Not Resolved]
  - Urinary incontinence [Not Recovered/Not Resolved]
  - Off label use [Unknown]

NARRATIVE: CASE EVENT DATE: 20230101
